FAERS Safety Report 8771056 (Version 2)
Quarter: 2013Q2

REPORT INFORMATION
  Report Type: Report from Study
  Country: US (occurrence: US)
  Receive Date: 20120906
  Receipt Date: 20130415
  Transmission Date: 20140414
  Serious: Yes (Other)
  Sender: FDA-Public Use
  Company Number: US-US-EMD SERONO, INC.-7158398

PATIENT
  Sex: Female

DRUGS (1)
  1. REBIF [Suspect]
     Indication: MULTIPLE SCLEROSIS
     Dosage: THREE YEARS
     Dates: start: 2009, end: 201208

REACTIONS (8)
  - Intentional self-injury [Recovering/Resolving]
  - Suicide attempt [Recovering/Resolving]
  - Mental disorder [Unknown]
  - Cellulitis [Not Recovered/Not Resolved]
  - Depression [Recovering/Resolving]
  - Anxiety [Unknown]
  - Mood swings [Not Recovered/Not Resolved]
  - Libido decreased [Not Recovered/Not Resolved]
